FAERS Safety Report 8622636-4 (Version None)
Quarter: 2012Q3

REPORT INFORMATION
  Report Type: 
  Country: None (occurrence: None)
  Receive Date: 20120827
  Receipt Date: 20120815
  Transmission Date: 20120928
  Serious: Yes (Other)
  Sender: FDA-Public Use
  Company Number: US-JNJFOC-20120809465

PATIENT
  Age: 26 Year
  Sex: Male

DRUGS (5)
  1. REMICADE [Suspect]
     Indication: CROHN'S DISEASE
     Route: 042
     Dates: start: 20120815
  2. REMICADE [Suspect]
     Route: 042
     Dates: start: 20100801
  3. HYDROCORTISONE [Concomitant]
     Indication: PREMEDICATION
     Route: 065
  4. BENADRYL [Concomitant]
     Indication: PREMEDICATION
     Route: 065
  5. TYLENOL [Concomitant]
     Indication: PREMEDICATION
     Route: 065

REACTIONS (4)
  - LOSS OF CONSCIOUSNESS [None]
  - INFUSION RELATED REACTION [None]
  - HYPERHIDROSIS [None]
  - DIZZINESS [None]
